FAERS Safety Report 6388701-X (Version None)
Quarter: 2009Q4

REPORT INFORMATION
  Report Type: 
  Country: None (occurrence: None)
  Receive Date: 20091002
  Receipt Date: 20091002
  Transmission Date: 20100525
  Serious: Yes (Life-Threatening)
  Sender: FDA-Public Use
  Company Number: None

PATIENT
  Sex: Female
  Weight: 68.9467 kg

DRUGS (1)
  1. DYAZIDE [Suspect]
     Indication: OEDEMA
     Dosage: 37.5/25 ONEQD PO
     Route: 048
     Dates: start: 20050707

REACTIONS (3)
  - ATRIAL FIBRILLATION [None]
  - DYSPNOEA [None]
  - HYPOKALAEMIA [None]
